FAERS Safety Report 25844659 (Version 1)
Quarter: 2025Q3

REPORT INFORMATION
  Report Type: Spontaneous
  Country: US (occurrence: US)
  Receive Date: 20250925
  Receipt Date: 20250925
  Transmission Date: 20251020
  Serious: Yes (Other)
  Sender: AMNEAL
  Company Number: US-AMNEAL PHARMACEUTICALS-2025-AMRX-03671

PATIENT
  Sex: Female
  Weight: 63.492 kg

DRUGS (2)
  1. WARFARIN SODIUM [Suspect]
     Active Substance: WARFARIN SODIUM
     Indication: Product used for unknown indication
     Route: 065
  2. LENVIMA [Suspect]
     Active Substance: LENVATINIB
     Indication: Uterine cancer
     Dosage: 4 CAPSULES, DAILY (4MG 5 DAY PACK)
     Route: 048

REACTIONS (2)
  - International normalised ratio increased [Recovering/Resolving]
  - Hypertension [Recovering/Resolving]
